FAERS Safety Report 5657154-9 (Version None)
Quarter: 2008Q1

REPORT INFORMATION
  Report Type: 
  Country: None (occurrence: None)
  Receive Date: 20080310
  Receipt Date: 20080226
  Transmission Date: 20080703
  Serious: Yes (Other)
  Sender: FDA-Public Use
  Company Number: NL-JNJFOC-20080206791

PATIENT
  Age: 53 Year
  Sex: Female

DRUGS (5)
  1. INFLIXIMAB [Suspect]
     Indication: RHEUMATOID ARTHRITIS
     Route: 042
  2. ISONIAZID [Suspect]
     Indication: PERITONEAL TUBERCULOSIS
  3. RIFAMPICIN [Suspect]
  4. RIFAMPICIN [Suspect]
     Indication: PERITONEAL TUBERCULOSIS
  5. PYRAZINAMIDE [Suspect]
     Indication: PERITONEAL TUBERCULOSIS

REACTIONS (3)
  - DISSEMINATED TUBERCULOSIS [None]
  - HEPATITIS [None]
  - PERITONEAL TUBERCULOSIS [None]
